FAERS Safety Report 23228773 (Version 1)
Quarter: 2023Q4

REPORT INFORMATION
  Report Type: Spontaneous
  Country: US (occurrence: None)
  Receive Date: 20231126
  Receipt Date: 20231126
  Transmission Date: 20240110
  Serious: No
  Sender: FDA-Public Use
  Company Number: US-ROCHE-3392743

PATIENT

DRUGS (2)
  1. HERCEPTIN [Suspect]
     Active Substance: TRASTUZUMAB
     Indication: Benign breast neoplasm
     Dosage: QUANTITY OF VIALS (14 ML^S/ MG FOR HERCEPTIN), QUANTITY OF MEASURE VIAL
     Route: 042
  2. PERJETA [Suspect]
     Active Substance: PERTUZUMAB
     Indication: Benign breast neoplasm
     Dosage: PERTUZUMAB 420 MG/14 ML (30 MG/ML) IV SOLN, QUANTITY OF MEASURE VIAL
     Route: 042

REACTIONS (2)
  - Off label use [Unknown]
  - No adverse event [Unknown]
